FAERS Safety Report 25738255 (Version 1)
Quarter: 2025Q3

REPORT INFORMATION
  Report Type: Spontaneous
  Country: EU (occurrence: EU)
  Receive Date: 20250829
  Receipt Date: 20250829
  Transmission Date: 20251020
  Serious: No
  Sender: ALKEM
  Company Number: EU-ALKEM LABORATORIES LIMITED-DE-ALKEM-2025-04870

PATIENT
  Sex: Female

DRUGS (1)
  1. PREGABALIN [Interacting]
     Active Substance: PREGABALIN
     Indication: Nerve injury
     Route: 065

REACTIONS (2)
  - Tonsillitis [Unknown]
  - Drug interaction [Unknown]
